FAERS Safety Report 12388378 (Version 2)
Quarter: 2016Q2

REPORT INFORMATION
  Report Type: Report from Study
  Country: US (occurrence: US)
  Receive Date: 20160520
  Receipt Date: 20160520
  Transmission Date: 20160815
  Serious: No
  Sender: FDA-Public Use
  Company Number: ALCN2012US007041

PATIENT

DRUGS (2)
  1. DORZOLAMIDE,TIMOLOL [Suspect]
     Active Substance: DORZOLAMIDE\TIMOLOL
     Indication: OCULAR HYPERTENSION
     Dosage: UNK
     Route: 047
  2. DORZOLAMIDE,TIMOLOL [Suspect]
     Active Substance: DORZOLAMIDE\TIMOLOL
     Indication: OPEN ANGLE GLAUCOMA

REACTIONS (1)
  - Drug ineffective [Unknown]
